FAERS Safety Report 19608922 (Version 1)
Quarter: 2021Q3

REPORT INFORMATION
  Report Type: Spontaneous
  Country: US (occurrence: US)
  Receive Date: 20210726
  Receipt Date: 20210726
  Transmission Date: 20211014
  Serious: No
  Sender: FDA-Public Use
  Company Number: US-BAYER-2021-181820

PATIENT
  Age: 76 Year
  Sex: Female

DRUGS (1)
  1. MIRALAX [Suspect]
     Active Substance: POLYETHYLENE GLYCOL 3350
     Dosage: 1 DF, QD
     Route: 048

REACTIONS (3)
  - Diarrhoea [Recovered/Resolved]
  - Constipation [Recovering/Resolving]
  - Incorrect product administration duration [Unknown]
